FAERS Safety Report 11139722 (Version 1)
Quarter: 2015Q2

REPORT INFORMATION
  Report Type: Spontaneous
  Country: CH (occurrence: CH)
  Receive Date: 20150527
  Receipt Date: 20150527
  Transmission Date: 20150821
  Serious: Yes (Other)
  Sender: FDA-Public Use
  Company Number: CH-PFIZER INC-2015174634

PATIENT
  Age: 61 Year
  Sex: Female

DRUGS (2)
  1. SOLU-MEDROL [Suspect]
     Active Substance: METHYLPREDNISOLONE SODIUM SUCCINATE
     Indication: PREMEDICATION
     Dosage: 125 MG, SINGLE
     Dates: start: 20150423, end: 20150423
  2. ULTRAVIST [Suspect]
     Active Substance: IOPROMIDE
     Indication: X-RAY
     Dosage: 80 ML, SINGLE
     Route: 042
     Dates: start: 20150423, end: 20150423

REACTIONS (2)
  - Urticaria [Recovered/Resolved]
  - Rash pustular [Recovered/Resolved]

NARRATIVE: CASE EVENT DATE: 20150423
